FAERS Safety Report 15000890 (Version 1)
Quarter: 2018Q2

REPORT INFORMATION
  Report Type: Spontaneous
  Country: US (occurrence: US)
  Receive Date: 20180521
  Receipt Date: 20180521
  Transmission Date: 20180711
  Serious: No
  Sender: FDA-Public Use
  Company Number: None

PATIENT
  Age: 11 Year
  Sex: Male
  Weight: 35.38 kg

DRUGS (1)
  1. SENNA SYRUP [Suspect]
     Active Substance: SENNOSIDES
     Indication: CONSTIPATION
     Route: 048
     Dates: start: 20170524

REACTIONS (2)
  - Retching [None]
  - Nausea [None]

NARRATIVE: CASE EVENT DATE: 20170523
